FAERS Safety Report 5528484-6 (Version None)
Quarter: 2007Q4

REPORT INFORMATION
  Report Type: 
  Country: None (occurrence: None)
  Receive Date: 20071128
  Receipt Date: 20071121
  Transmission Date: 20080405
  Serious: Yes (Other)
  Sender: FDA-Public Use
  Company Number: FR-MERCK-0711FRA00077

PATIENT
  Age: 15 Year
  Sex: Female

DRUGS (4)
  1. SINGULAIR [Suspect]
     Indication: ASTHMA
     Route: 048
     Dates: start: 20000101, end: 20040101
  2. CETIRIZINE HYDROCHLORIDE [Concomitant]
     Route: 048
  3. FLUTICASONE PROPIONATE AND SALMETEROL XINAFOATE [Concomitant]
     Indication: ASTHMA
  4. TERBUTALINE SULFATE [Concomitant]
     Indication: ASTHMA

REACTIONS (1)
  - GRAND MAL CONVULSION [None]
